FAERS Safety Report 26148782 (Version 1)
Quarter: 2025Q4

REPORT INFORMATION
  Report Type: Spontaneous
  Country: US (occurrence: US)
  Receive Date: 20251212
  Receipt Date: 20251212
  Transmission Date: 20260118
  Serious: No
  Sender: STRIDES
  Company Number: US-STRIDES ARCOLAB LIMITED-2025SP008953

PATIENT
  Sex: Male

DRUGS (19)
  1. OLANZAPINE [Suspect]
     Active Substance: OLANZAPINE
     Indication: Schizophrenia
     Dosage: 10 MG EVERY NIGHT AT BED TIME
     Route: 065
     Dates: start: 201503, end: 2015
  2. OLANZAPINE [Suspect]
     Active Substance: OLANZAPINE
     Dosage: 30 MG EVERY NIGHT AT BED TIME
     Route: 065
     Dates: start: 201507
  3. OLANZAPINE [Suspect]
     Active Substance: OLANZAPINE
     Dosage: 20 MG EVERY NIGHT AT BED TIME
     Route: 065
     Dates: start: 201505
  4. OLANZAPINE [Suspect]
     Active Substance: OLANZAPINE
     Dosage: 30 MILLIGRAM
     Route: 065
     Dates: start: 201507
  5. OLANZAPINE [Suspect]
     Active Substance: OLANZAPINE
     Dosage: 30 MILLIGRAM
     Route: 065
     Dates: start: 202108
  6. OLANZAPINE [Suspect]
     Active Substance: OLANZAPINE
     Dosage: 15 MILLIGRAM
     Route: 065
     Dates: start: 202205
  7. OLANZAPINE [Suspect]
     Active Substance: OLANZAPINE
     Dosage: 30 MILLIGRAM, AT BED TIME
     Route: 065
     Dates: start: 202205
  8. OLANZAPINE [Suspect]
     Active Substance: OLANZAPINE
     Dosage: 30 MILLIGRAM, AT BED TIME
     Route: 065
     Dates: start: 202308, end: 2025
  9. PALIPERIDONE [Suspect]
     Active Substance: PALIPERIDONE
     Indication: Schizophrenia
     Dosage: UNK
     Route: 065
  10. PALIPERIDONE [Suspect]
     Active Substance: PALIPERIDONE
     Dosage: 6 MILLIGRAM
     Route: 065
     Dates: start: 202012
  11. PERPHENAZINE [Suspect]
     Active Substance: PERPHENAZINE
     Indication: Schizophrenia
     Dosage: UNK
     Route: 065
  12. HALOPERIDOL DECANOATE [Suspect]
     Active Substance: HALOPERIDOL DECANOATE
     Indication: Schizophrenia
     Dosage: UNK
     Route: 065
  13. ARIPIPRAZOLE [Suspect]
     Active Substance: ARIPIPRAZOLE
     Indication: Schizophrenia
     Dosage: UNK
     Route: 065
  14. ARIPIPRAZOLE [Suspect]
     Active Substance: ARIPIPRAZOLE
     Dosage: 10-15 MG
     Route: 065
     Dates: start: 2023
  15. QUETIAPINE [Suspect]
     Active Substance: QUETIAPINE
     Indication: Schizophrenia
     Dosage: UNK
     Route: 065
  16. QUETIAPINE [Suspect]
     Active Substance: QUETIAPINE
     Dosage: 200 MILLIGRAM
     Route: 065
     Dates: start: 201503, end: 2015
  17. OLANZAPINE\SAMIDORPHAN [Concomitant]
     Active Substance: OLANZAPINE\SAMIDORPHAN
     Indication: Weight decreased
     Dosage: UNK UNK, AT BED TIME
     Route: 065
     Dates: start: 202205, end: 202212
  18. OLANZAPINE\SAMIDORPHAN [Concomitant]
     Active Substance: OLANZAPINE\SAMIDORPHAN
     Indication: Schizophrenia
     Dosage: UNK UNK, AT BED TIME
     Route: 065
     Dates: start: 202304
  19. LUMATEPERONE [Concomitant]
     Active Substance: LUMATEPERONE
     Indication: Schizophrenia
     Dosage: UNK
     Route: 065
     Dates: start: 2023

REACTIONS (2)
  - Weight increased [Recovering/Resolving]
  - Treatment noncompliance [Unknown]

NARRATIVE: CASE EVENT DATE: 20210101
